FAERS Safety Report 4321105-X (Version None)
Quarter: 2004Q1

REPORT INFORMATION
  Report Type: 
  Country: None (occurrence: None)
  Receive Date: 20040322
  Receipt Date: 20031208
  Transmission Date: 20041129
  Serious: Yes (Life-Threatening, Hospitalization)
  Sender: FDA-Public Use
  Company Number: US-GLAXOSMITHKLINE-A0442426A

PATIENT
  Age: 54 Year
  Sex: Male
  Weight: 105.9 kg

DRUGS (3)
  1. WELLBUTRIN XL [Suspect]
     Indication: SEASONAL AFFECTIVE DISORDER
     Route: 048
     Dates: start: 20031017, end: 20031206
  2. GLUCOSAMINE [Concomitant]
     Route: 048
  3. NEXIUM [Concomitant]
     Route: 048

REACTIONS (9)
  - ABNORMAL BEHAVIOUR [None]
  - ANXIETY [None]
  - CHEST PAIN [None]
  - CIRCULATORY COLLAPSE [None]
  - DISORIENTATION [None]
  - HEART RATE INCREASED [None]
  - ILL-DEFINED DISORDER [None]
  - STRESS SYMPTOMS [None]
  - SUPRAVENTRICULAR TACHYCARDIA [None]
